FAERS Safety Report 12648135 (Version 1)
Quarter: 2016Q3

REPORT INFORMATION
  Report Type: Spontaneous
  Country: US (occurrence: None)
  Receive Date: 20160811
  Receipt Date: 20160811
  Transmission Date: 20161109
  Serious: Yes (Hospitalization)
  Sender: FDA-Public Use
  Company Number: None

PATIENT
  Age: 49 Year
  Sex: Male
  Weight: 82.5 kg

DRUGS (1)
  1. CAMPTOSAR [Suspect]
     Active Substance: IRINOTECAN HYDROCHLORIDE
     Dates: end: 20160725

REACTIONS (9)
  - Skin lesion [None]
  - Confusional state [None]
  - Hypophagia [None]
  - Dehydration [None]
  - Wound infection bacterial [None]
  - Overdose [None]
  - Lethargy [None]
  - Fatigue [None]
  - Condition aggravated [None]

NARRATIVE: CASE EVENT DATE: 20160802
